FAERS Safety Report 9769601 (Version 1)
Quarter: 2013Q3

REPORT INFORMATION
  Report Type: Spontaneous
  Country: US (occurrence: None)
  Receive Date: 20130910
  Receipt Date: 20130910
  Transmission Date: 20140515
  Serious: Yes (Hospitalization)
  Sender: FDA-Public Use
  Company Number: DSA_53386_2012

PATIENT
  Age: 83 Year
  Sex: Male

DRUGS (3)
  1. 5-FLUOROURACIL [Suspect]
     Indication: OESOPHAGEAL ADENOCARCINOMA
  2. FOLINIC ACID (FOLINIC ACID) (FOLINIC ACID) [Suspect]
     Indication: OESOPHAGEAL ADENOCARCINOMA
  3. OXALIPLATIN (OXALIPLATIN) (OXALIPLATIN) [Suspect]
     Indication: OESOPHAGEAL ADENOCARCINOMA

REACTIONS (2)
  - Myocarditis [None]
  - Cardiotoxicity [None]
